FAERS Safety Report 17333216 (Version 6)
Quarter: 2022Q3

REPORT INFORMATION
  Report Type: Other
  Country: MX (occurrence: None)
  Receive Date: 20200128
  Receipt Date: 20220922
  Transmission Date: 20221027
  Serious: Yes (Disabling, Other)
  Sender: FDA-Public Use
  Company Number: MX-ROCHE-2531379

PATIENT
  Age: 49 Year
  Sex: Female
  Weight: 57 kg

DRUGS (9)
  1. TOCILIZUMAB [Suspect]
     Active Substance: TOCILIZUMAB
     Indication: Rheumatoid arthritis
     Dosage: TOCILIZUMAB 200MG/10ML VIAL
     Route: 042
     Dates: start: 20180917
  2. TOCILIZUMAB [Suspect]
     Active Substance: TOCILIZUMAB
     Route: 042
     Dates: start: 20181027
  3. TOCILIZUMAB [Suspect]
     Active Substance: TOCILIZUMAB
     Route: 042
     Dates: start: 20211006
  4. TOCILIZUMAB [Suspect]
     Active Substance: TOCILIZUMAB
     Indication: Rheumatoid arthritis
     Route: 058
     Dates: start: 202107, end: 202109
  5. ACETAMINOPHEN\TRAMADOL [Concomitant]
     Active Substance: ACETAMINOPHEN\TRAMADOL
  6. FOLIVITAL [Concomitant]
  7. OMEPRAZOLE [Concomitant]
     Active Substance: OMEPRAZOLE
     Indication: Gastritis
  8. CELEBREX [Concomitant]
     Active Substance: CELECOXIB
     Indication: Pain
  9. ORENCIA [Concomitant]
     Active Substance: ABATACEPT
     Indication: Rheumatoid arthritis

REACTIONS (31)
  - Feeling abnormal [Recovered/Resolved]
  - Pain [Not Recovered/Not Resolved]
  - Musculoskeletal disorder [Unknown]
  - Gait disturbance [Recovered/Resolved]
  - Ill-defined disorder [Recovered/Resolved]
  - Arthropathy [Unknown]
  - Joint range of motion decreased [Unknown]
  - Osteopenia [Unknown]
  - Spinal pain [Unknown]
  - Back disorder [Unknown]
  - Dyspnoea [Unknown]
  - Blood pressure decreased [Unknown]
  - Speech disorder [Unknown]
  - Eye disorder [Unknown]
  - Tachycardia [Unknown]
  - Hypoaesthesia [Not Recovered/Not Resolved]
  - Malaise [Unknown]
  - Pain in extremity [Recovered/Resolved]
  - Drug ineffective [Unknown]
  - Disease recurrence [Recovered/Resolved]
  - Disease progression [Unknown]
  - Joint range of motion decreased [Not Recovered/Not Resolved]
  - Movement disorder [Recovered/Resolved]
  - Paralysis [Recovered/Resolved]
  - Cervical spinal cord paralysis [Recovered/Resolved]
  - Arthralgia [Not Recovered/Not Resolved]
  - Pain in extremity [Not Recovered/Not Resolved]
  - Wrist deformity [Not Recovered/Not Resolved]
  - Elbow deformity [Not Recovered/Not Resolved]
  - Headache [Recovered/Resolved]
  - Gastritis [Not Recovered/Not Resolved]

NARRATIVE: CASE EVENT DATE: 20191220
